FAERS Safety Report 9515773 (Version 1)
Quarter: 2013Q3

REPORT INFORMATION
  Report Type: Spontaneous
  Country: EG (occurrence: EG)
  Receive Date: 20130911
  Receipt Date: 20130911
  Transmission Date: 20140515
  Serious: Yes (Death)
  Sender: FDA-Public Use
  Company Number: EG-SANOFI-AVENTIS-2013SA089523

PATIENT
  Age: 55 Year
  Sex: Female

DRUGS (4)
  1. CLEXANE [Suspect]
     Indication: THROMBOSIS PROPHYLAXIS
     Route: 065
     Dates: start: 20130824
  2. CLEXANE [Suspect]
     Indication: THROMBOSIS PROPHYLAXIS
     Route: 065
     Dates: start: 20130824
  3. CLEXANE [Suspect]
     Indication: THROMBOSIS PROPHYLAXIS
     Route: 065
     Dates: end: 20130831
  4. CLEXANE [Suspect]
     Indication: THROMBOSIS PROPHYLAXIS
     Route: 065
     Dates: end: 20130831

REACTIONS (4)
  - Pulmonary embolism [Fatal]
  - Dyspnoea [Fatal]
  - Cyanosis [Fatal]
  - Hypotension [Fatal]
